FAERS Safety Report 11486873 (Version 3)
Quarter: 2016Q4

REPORT INFORMATION
  Report Type: Spontaneous
  Country: US (occurrence: US)
  Receive Date: 20150910
  Receipt Date: 20161012
  Transmission Date: 20170206
  Serious: No
  Sender: FDA-Public Use
  Company Number: US-PFIZER INC-2015290762

PATIENT
  Age: 61 Year
  Sex: Female

DRUGS (2)
  1. PANTOPRAZOLE [Suspect]
     Active Substance: PANTOPRAZOLE SODIUM
     Indication: BURN OESOPHAGEAL
     Dosage: 40 MG, 2X/DAY
     Route: 048
  2. PANTOPRAZOLE [Suspect]
     Active Substance: PANTOPRAZOLE SODIUM
     Indication: GASTROOESOPHAGEAL REFLUX DISEASE

REACTIONS (3)
  - Product use issue [Unknown]
  - Drug ineffective [Recovered/Resolved]
  - Drug intolerance [Recovered/Resolved]
